FAERS Safety Report 5695460-2 (Version None)
Quarter: 2008Q2

REPORT INFORMATION
  Report Type: 
  Country: None (occurrence: None)
  Receive Date: 20080403
  Receipt Date: 20080314
  Transmission Date: 20081010
  Serious: Yes (Life-Threatening)
  Sender: FDA-Public Use
  Company Number: 03142008-CG-A

PATIENT
  Age: 56 Year
  Sex: Male
  Weight: 113 kg

DRUGS (3)
  1. HURRICAINE TOPICAL ANESTHETIC SPRAY - 20% BENZOCAINE ORAL ANESTHETIC B [Suspect]
     Indication: ECHOCARDIOGRAM
     Dosage: ^MANY SPRAYS^ - ORALLY
     Route: 048
     Dates: start: 20080204
  2. HURRICAINE TOPICAL ANESTHETIC SPRAY - 20% BENZOCAINE ORAL ANESTHETIC B [Suspect]
  3. IV FENTANYL INJ [Concomitant]

REACTIONS (1)
  - RESPIRATORY ARREST [None]
